FAERS Safety Report 21851464 (Version 6)
Quarter: 2025Q3

REPORT INFORMATION
  Report Type: Report from Study
  Country: JP (occurrence: JP)
  Receive Date: 20230112
  Receipt Date: 20250819
  Transmission Date: 20251020
  Serious: Yes (Death, Hospitalization, Other)
  Sender: ABBVIE
  Company Number: JP-TAKEDA-2023TJP000071

PATIENT
  Age: 86 Year
  Sex: Male

DRUGS (5)
  1. LEUPROLIDE ACETATE [Suspect]
     Active Substance: LEUPROLIDE ACETATE
     Indication: Bulbospinal muscular atrophy congenital
     Dosage: 11.25 MILLIGRAM, Q3MONTHS
     Route: 058
     Dates: start: 20171120, end: 20191111
  2. AMERGE [Concomitant]
     Active Substance: NARATRIPTAN HYDROCHLORIDE
     Indication: Migraine
     Dates: end: 20191210
  3. BIFIDOBACTERIUM SPP. [Concomitant]
     Active Substance: BIFIDOBACTERIUM SPP.
     Indication: Bulbospinal muscular atrophy congenital
     Dates: start: 20191210
  4. BROMHEXINE HYDROCHLORIDE [Concomitant]
     Active Substance: BROMHEXINE HYDROCHLORIDE
     Indication: Bulbospinal muscular atrophy congenital
     Dates: end: 20191210
  5. ETIZOLAM [Concomitant]
     Active Substance: ETIZOLAM
     Indication: Insomnia
     Dates: end: 20191210

REACTIONS (5)
  - Death [Fatal]
  - Traumatic subarachnoid haemorrhage [Recovered/Resolved with Sequelae]
  - Pneumonia aspiration [Recovered/Resolved]
  - Hypertension [Recovering/Resolving]
  - Fall [Recovered/Resolved with Sequelae]

NARRATIVE: CASE EVENT DATE: 20191209
